FAERS Safety Report 10233129 (Version 3)
Quarter: 2014Q4

REPORT INFORMATION
  Report Type: Spontaneous
  Country: US (occurrence: US)
  Receive Date: 20140612
  Receipt Date: 20141119
  Transmission Date: 20150528
  Serious: Yes (Hospitalization, Other)
  Sender: FDA-Public Use
  Company Number: US-BAYER-2014-086280

PATIENT
  Age: 26 Year
  Sex: Female
  Weight: 58.96 kg

DRUGS (6)
  1. VICKS NYQUIL [Concomitant]
     Active Substance: ACETAMINOPHEN\DEXTROMETHORPHAN HYDROBROMIDE\DOXYLAMINE SUCCINATE
  2. DAYQUIL [DEXTROMET HBR,PARACET,PSEUDOEPH HCL] [Concomitant]
  3. MIRENA [Suspect]
     Active Substance: LEVONORGESTREL
     Indication: CONTRACEPTION
     Dosage: 20 MCG/24HR, CONT
     Dates: start: 20080325, end: 20130211
  4. MIRENA [Suspect]
     Active Substance: LEVONORGESTREL
     Indication: CONTRACEPTION
     Dosage: 20 MCG/24HR, CONT
     Route: 015
     Dates: start: 20080212, end: 20130125
  5. ZOLOFT [Concomitant]
     Active Substance: SERTRALINE HYDROCHLORIDE
  6. ZOLOFT [Concomitant]
     Active Substance: SERTRALINE HYDROCHLORIDE

REACTIONS (17)
  - Off label use [None]
  - Hypoaesthesia [None]
  - Uterine perforation [None]
  - Hormone level abnormal [None]
  - Device use error [None]
  - Dyspareunia [None]
  - Menorrhagia [None]
  - Depression [None]
  - Anxiety [None]
  - Decreased activity [None]
  - Device dislocation [None]
  - Emotional distress [None]
  - Injury [None]
  - Back pain [None]
  - Scar [None]
  - Abdominal pain [None]
  - Device issue [None]

NARRATIVE: CASE EVENT DATE: 200802
